FAERS Safety Report 14437062 (Version 3)
Quarter: 2018Q1

REPORT INFORMATION
  Report Type: Spontaneous
  Country: FR (occurrence: FR)
  Receive Date: 20180125
  Receipt Date: 20180309
  Transmission Date: 20180509
  Serious: Yes (Hospitalization, Other)
  Sender: FDA-Public Use
  Company Number: FR-AUROBINDO-AUR-APL-2018-002601

PATIENT
  Age: 77 Year
  Sex: Female
  Weight: 71 kg

DRUGS (4)
  1. SIMVASTATIN. [Suspect]
     Active Substance: SIMVASTATIN
     Indication: PRODUCT USED FOR UNKNOWN INDICATION
     Dosage: UNK ()
     Dates: end: 2015
  2. EZETROL [Suspect]
     Active Substance: EZETIMIBE
     Indication: PRODUCT USED FOR UNKNOWN INDICATION
     Dosage: IN THE EVENING TIME ()
     Route: 065
  3. SIMVASTATIN. [Suspect]
     Active Substance: SIMVASTATIN
     Indication: PRODUCT USED FOR UNKNOWN INDICATION
     Dosage: ()
     Route: 065
  4. EZETROL [Suspect]
     Active Substance: EZETIMIBE
     Dosage: UNK, IN THE EVENING TIME ()
     Dates: start: 2015, end: 201709

REACTIONS (8)
  - Bone cancer [Unknown]
  - Breast pain [Recovered/Resolved]
  - Cerebrovascular accident [Recovered/Resolved]
  - Muscle spasms [Recovered/Resolved]
  - Neoplasm malignant [Unknown]
  - Cough [Recovering/Resolving]
  - Drug intolerance [Unknown]
  - Bronchitis [Recovered/Resolved]

NARRATIVE: CASE EVENT DATE: 2016
